FAERS Safety Report 14666355 (Version 1)
Quarter: 2018Q1

REPORT INFORMATION
  Report Type: Spontaneous
  Country: US (occurrence: US)
  Receive Date: 20180321
  Receipt Date: 20180321
  Transmission Date: 20180509
  Serious: Yes (Death, Life-Threatening)
  Sender: FDA-Public Use
  Company Number: US-ELI_LILLY_AND_COMPANY-US201803009535

PATIENT

DRUGS (2)
  1. LISPRO [Suspect]
     Active Substance: INSULIN LISPRO
     Indication: PRODUCT USED FOR UNKNOWN INDICATION
     Dosage: 5 IU, UNKNOWN
     Route: 065
  2. LISPRO [Suspect]
     Active Substance: INSULIN LISPRO
     Dosage: 50 IU, UNKNOWN
     Route: 065

REACTIONS (3)
  - Cardio-respiratory arrest [Unknown]
  - Overdose [Unknown]
  - Death [Fatal]
